FAERS Safety Report 24451387 (Version 1)
Quarter: 2024Q4

REPORT INFORMATION
  Report Type: Spontaneous
  Country: US (occurrence: US)
  Receive Date: 20241017
  Receipt Date: 20241017
  Transmission Date: 20250115
  Serious: No
  Sender: FENNEC PHARMACEUTICALS
  Company Number: US-FENNEC PHARMACEUTICALS, INC.-2024FEN00038

PATIENT

DRUGS (4)
  1. PEDMARK [Suspect]
     Active Substance: SODIUM THIOSULFATE
     Dosage: 20 G/M2 (ACTUAL DOSE NOT REPORTED)
     Route: 065
  2. CISPLATIN [Concomitant]
     Active Substance: CISPLATIN
  3. ATIVAN [Concomitant]
     Active Substance: LORAZEPAM
     Dosage: 1 MG
  4. COMPAZINE [Concomitant]
     Active Substance: PROCHLORPERAZINE MALEATE
     Dosage: 10 MG

REACTIONS (2)
  - Nausea [Unknown]
  - Vomiting [Recovered/Resolved]
